FAERS Safety Report 4738535-4 (Version None)
Quarter: 2005Q3

REPORT INFORMATION
  Report Type: 
  Country: None (occurrence: None)
  Receive Date: 20050803
  Receipt Date: 20050713
  Transmission Date: 20060218
  Serious: Yes (Hospitalization)
  Sender: FDA-Public Use
  Company Number: US_0507119685

PATIENT
  Age: 57 Year
  Sex: Male

DRUGS (10)
  1. ALIMTA [Suspect]
     Indication: ADENOCARCINOMA PANCREAS
     Dosage: 750 MG OTHER
     Route: 050
     Dates: start: 20050616, end: 20050616
  2. ALIMTA [Suspect]
     Indication: DISEASE PROGRESSION
     Dosage: 750 MG OTHER
     Route: 050
     Dates: start: 20050616, end: 20050616
  3. ALIMTA [Suspect]
     Indication: METASTASES TO LIVER
     Dosage: 750 MG OTHER
     Route: 050
     Dates: start: 20050616, end: 20050616
  4. ALIMTA [Suspect]
     Indication: OEDEMA
     Dosage: 750 MG OTHER
     Route: 050
     Dates: start: 20050616, end: 20050616
  5. VITAMIN B-12 [Concomitant]
  6. DEXAMETHASONE [Concomitant]
  7. MORPHINE [Concomitant]
  8. GABAPENTIN [Concomitant]
  9. GATIFLOXACIN [Concomitant]
  10. FOLIC ACID [Concomitant]

REACTIONS (18)
  - ACUTE PULMONARY OEDEMA [None]
  - BLOOD BILIRUBIN INCREASED [None]
  - BLOOD GLUCOSE INCREASED [None]
  - BLOOD PH DECREASED [None]
  - BLOOD PRESSURE DECREASED [None]
  - BLOOD SODIUM DECREASED [None]
  - C-REACTIVE PROTEIN INCREASED [None]
  - CALCIUM IONISED DECREASED [None]
  - DISORIENTATION [None]
  - HAEMATOCRIT DECREASED [None]
  - HAEMOGLOBIN DECREASED [None]
  - LEUKOPENIA [None]
  - OLIGURIA [None]
  - PO2 DECREASED [None]
  - PYREXIA [None]
  - RED BLOOD CELL COUNT DECREASED [None]
  - RENAL FAILURE [None]
  - WHITE BLOOD CELL COUNT DECREASED [None]
